FAERS Safety Report 9658343 (Version 1)
Quarter: 2013Q4

REPORT INFORMATION
  Report Type: Spontaneous
  Country: US (occurrence: US)
  Receive Date: 20131030
  Receipt Date: 20131030
  Transmission Date: 20140711
  Serious: Yes (Death, Other)
  Sender: FDA-Public Use
  Company Number: US-BAXTER-2013BAX042371

PATIENT
  Age: 53 Year
  Sex: Male

DRUGS (9)
  1. DOPAMINE HYDROCHLORIDE AND 5% DEXTROSE INJECTION, USP [Suspect]
     Indication: HYPOTENSION
  2. DILTIAZEM [Suspect]
     Indication: PRODUCT USED FOR UNKNOWN INDICATION
     Dosage: 100 NG/ML ON HOSPITAL DAY 5
  3. PROPRANOLOL [Suspect]
     Indication: PRODUCT USED FOR UNKNOWN INDICATION
  4. PROPRANOLOL [Suspect]
     Dosage: 53 NG/ML ON HOSPITAL DAY 2
  5. CALCIUM [Suspect]
     Indication: PRODUCT USED FOR UNKNOWN INDICATION
     Dosage: 32 MEQ
  6. INSULIN [Suspect]
     Indication: PRODUCT USED FOR UNKNOWN INDICATION
     Dosage: 1.5 U/KG/HR
  7. EPINEPHRINE [Suspect]
     Indication: PRODUCT USED FOR UNKNOWN INDICATION
  8. ATROPINE [Suspect]
     Indication: PRODUCT USED FOR UNKNOWN INDICATION
  9. FAT EMULSION [Suspect]
     Indication: PRODUCT USED FOR UNKNOWN INDICATION
     Route: 042

REACTIONS (2)
  - Multi-organ failure [Fatal]
  - Cardiac arrest [Recovered/Resolved]
